FAERS Safety Report 4336319-2 (Version None)
Quarter: 2004Q2

REPORT INFORMATION
  Report Type: 
  Country: None (occurrence: None)
  Receive Date: 20040407
  Receipt Date: 20040405
  Transmission Date: 20050107
  Serious: Yes (Other)
  Sender: FDA-Public Use
  Company Number: US-SHR-03-018440

PATIENT
  Age: 62 Year
  Sex: Female

DRUGS (1)
  1. MAGNEVIST [Suspect]
     Indication: NUCLEAR MAGNETIC RESONANCE IMAGING
     Dosage: 15ML, 1 DOSE, INTRAVENOUS
     Route: 042
     Dates: start: 20031204, end: 20031204

REACTIONS (1)
  - BLISTER [None]
